FAERS Safety Report 5511578-9 (Version None)
Quarter: 2007Q4

REPORT INFORMATION
  Report Type: 
  Country: None (occurrence: None)
  Receive Date: 20071109
  Receipt Date: 20071106
  Transmission Date: 20080405
  Serious: Yes (Other)
  Sender: FDA-Public Use
  Company Number: US-SANOFI-SYNTHELABO-A03200705830

PATIENT
  Age: 50 Year
  Sex: Male
  Weight: 113.4 kg

DRUGS (1)
  1. AMBIEN [Suspect]
     Indication: SLEEP DISORDER
     Dosage: 10 MG, 1 TO 4 EACH NIGHT AS NEEDED
     Route: 048
     Dates: start: 20040101, end: 20060301

REACTIONS (3)
  - DRUG ABUSE [None]
  - IMPAIRED DRIVING ABILITY [None]
  - SOMNAMBULISM [None]
